FAERS Safety Report 12268078 (Version 4)
Quarter: 2016Q2

REPORT INFORMATION
  Report Type: Spontaneous
  Country: US (occurrence: US)
  Receive Date: 20160414
  Receipt Date: 20160608
  Transmission Date: 20160815
  Serious: Yes (Death, Hospitalization)
  Sender: FDA-Public Use
  Company Number: US-UNITED THERAPEUTICS-UNT-2016-005686

PATIENT
  Age: 2 Year
  Sex: Male

DRUGS (4)
  1. UNITUXIN [Suspect]
     Active Substance: DINUTUXIMAB
     Indication: NEUROBLASTOMA
     Dosage: 17.5 MG/M2/DAY 4 DAYS
     Route: 041
     Dates: start: 20160307, end: 20160311
  2. RETINOIC ACID [Suspect]
     Active Substance: TRETINOIN
     Indication: PRODUCT USED FOR UNKNOWN INDICATION
     Dosage: UNK
     Route: 048
     Dates: start: 20160315, end: 20160322
  3. ONDANSETRON [Concomitant]
     Active Substance: ONDANSETRON
     Indication: PRODUCT USED FOR UNKNOWN INDICATION
     Dosage: UNK, PRN
  4. ESOMEPRAZOLE [Concomitant]
     Active Substance: ESOMEPRAZOLE
     Indication: PRODUCT USED FOR UNKNOWN INDICATION
     Dosage: UNK
     Route: 048

REACTIONS (12)
  - Diarrhoea [Recovering/Resolving]
  - Fluid retention [Unknown]
  - Tachycardia [Unknown]
  - Neuropathy peripheral [Unknown]
  - Rash [Unknown]
  - Pyrexia [Unknown]
  - Encephalitis autoimmune [Fatal]
  - Pulmonary oedema [Fatal]
  - Irritability [Unknown]
  - Clostridium difficile infection [Recovering/Resolving]
  - Cardiac arrest [Fatal]
  - Pneumonia [Fatal]

NARRATIVE: CASE EVENT DATE: 201603
